FAERS Safety Report 25814058 (Version 1)
Quarter: 2025Q3

REPORT INFORMATION
  Report Type: Spontaneous
  Country: US (occurrence: US)
  Receive Date: 20250917
  Receipt Date: 20250917
  Transmission Date: 20251020
  Serious: No
  Sender: ARDELYX
  Company Number: US-ARDELYX-2024ARDX007937

PATIENT
  Sex: Male

DRUGS (2)
  1. XPHOZAH [Suspect]
     Active Substance: TENAPANOR HYDROCHLORIDE
     Indication: Chronic kidney disease
     Route: 048
     Dates: start: 20240109, end: 20241124
  2. XPHOZAH [Suspect]
     Active Substance: TENAPANOR HYDROCHLORIDE
     Route: 048
     Dates: start: 20250121, end: 20250624

REACTIONS (3)
  - Diarrhoea [Unknown]
  - Blood phosphorus abnormal [Unknown]
  - Treatment noncompliance [Unknown]
